FAERS Safety Report 25179864 (Version 1)
Quarter: 2025Q2

REPORT INFORMATION
  Report Type: Spontaneous
  Country: US (occurrence: US)
  Receive Date: 20250409
  Receipt Date: 20250409
  Transmission Date: 20250717
  Serious: No
  Sender: ELI LILLY AND CO
  Company Number: US-ELI_LILLY_AND_COMPANY-US202504006407

PATIENT
  Age: 42 Year
  Sex: Male

DRUGS (4)
  1. TALTZ [Suspect]
     Active Substance: IXEKIZUMAB
     Indication: Psoriasis
     Route: 058
     Dates: end: 2024
  2. TALTZ [Suspect]
     Active Substance: IXEKIZUMAB
     Route: 058
     Dates: start: 202501
  3. TALTZ [Suspect]
     Active Substance: IXEKIZUMAB
     Route: 058
  4. TALTZ [Suspect]
     Active Substance: IXEKIZUMAB
     Route: 058

REACTIONS (4)
  - Psoriasis [Unknown]
  - Joint stiffness [Unknown]
  - Arthralgia [Unknown]
  - Overdose [Unknown]
